FAERS Safety Report 18996632 (Version 1)
Quarter: 2021Q1

REPORT INFORMATION
  Report Type: Spontaneous
  Country: GB (occurrence: GB)
  Receive Date: 20210311
  Receipt Date: 20210311
  Transmission Date: 20210420
  Serious: Yes (Death, Life-Threatening, Other)
  Sender: FDA-Public Use
  Company Number: GB-AXELLIA-003706

PATIENT
  Age: 79 Year
  Sex: Male
  Weight: 79 kg

DRUGS (27)
  1. GENTAMICIN. [Concomitant]
     Active Substance: GENTAMICIN
  2. THIAMINE. [Concomitant]
     Active Substance: THIAMINE
  3. VANCOMYCIN [Concomitant]
     Active Substance: VANCOMYCIN
  4. ALENDRONATE SODIUM/ALENDRONIC ACID [Concomitant]
     Active Substance: ALENDRONATE SODIUM
  5. OXYCODONE [Concomitant]
     Active Substance: OXYCODONE
  6. DAPTOMYCIN. [Suspect]
     Active Substance: DAPTOMYCIN
     Indication: ENTEROCOCCAL INFECTION
     Dosage: 850MG
     Route: 042
     Dates: start: 20201204, end: 20201218
  7. SULFAMETHOXAZOLE/TRIMETHOPRIM [Concomitant]
     Active Substance: SULFAMETHOXAZOLE\TRIMETHOPRIM
  8. LACTULOSE. [Concomitant]
     Active Substance: LACTULOSE
  9. LINEZOLID. [Concomitant]
     Active Substance: LINEZOLID
  10. METHYLPREDNISOLONE. [Concomitant]
     Active Substance: METHYLPREDNISOLONE
  11. DOXYCYCLINE. [Concomitant]
     Active Substance: DOXYCYCLINE
  12. IRON [Concomitant]
     Active Substance: IRON
  13. FOLIC ACID. [Concomitant]
     Active Substance: FOLIC ACID
  14. ENOXAPARIN [Concomitant]
     Active Substance: ENOXAPARIN
  15. FUROSEMIDE. [Concomitant]
     Active Substance: FUROSEMIDE
  16. LANSOPRAZOLE. [Concomitant]
     Active Substance: LANSOPRAZOLE
  17. RIFAMPICIN [Concomitant]
     Active Substance: RIFAMPIN
  18. SENNA ALEXANDRINA [Concomitant]
     Active Substance: SENNA LEAF
  19. TAMSULOSIN/TAMSULOSIN HYDROCHLORIDE [Concomitant]
     Active Substance: TAMSULOSIN HYDROCHLORIDE
  20. CALCICHEW [Concomitant]
     Active Substance: CALCIUM CARBONATE
  21. LEUPRORELIN [Concomitant]
     Active Substance: LEUPROLIDE ACETATE
  22. PARACETAMOL [Concomitant]
     Active Substance: ACETAMINOPHEN
  23. PROCHLORPERAZINE. [Concomitant]
     Active Substance: PROCHLORPERAZINE
  24. MEROPENEM. [Concomitant]
     Active Substance: MEROPENEM
  25. SANDO K [Concomitant]
  26. TEMOCILLIN/TEMOCILLIN DISODIUM [Concomitant]
  27. TIGECYCLINE. [Concomitant]
     Active Substance: TIGECYCLINE

REACTIONS (1)
  - Eosinophilic pneumonia acute [Fatal]

NARRATIVE: CASE EVENT DATE: 20201213
